FAERS Safety Report 17282870 (Version 2)
Quarter: 2020Q1

REPORT INFORMATION
  Report Type: Spontaneous
  Country: US (occurrence: US)
  Receive Date: 20200117
  Receipt Date: 20200123
  Transmission Date: 20200409
  Serious: No
  Sender: FDA-Public Use
  Company Number: US-009507513-2001USA000611

PATIENT
  Age: 72 Year
  Sex: Male

DRUGS (4)
  1. ASMANEX [Suspect]
     Active Substance: MOMETASONE FUROATE
     Dosage: 4 PUFFS DAILY
     Route: 055
     Dates: start: 201909
  2. ASMANEX [Suspect]
     Active Substance: MOMETASONE FUROATE
     Dosage: 4 PUFFS DAILY
     Route: 055
     Dates: start: 201909
  3. ASMANEX [Suspect]
     Active Substance: MOMETASONE FUROATE
     Dosage: 4 PUFFS DAILY
     Route: 055
     Dates: start: 201909
  4. ASMANEX [Suspect]
     Active Substance: MOMETASONE FUROATE
     Dosage: 4 PUFFS DAILY
     Route: 055
     Dates: start: 20191219

REACTIONS (3)
  - No adverse event [Unknown]
  - Product quality issue [Unknown]
  - Poor quality device used [Unknown]

NARRATIVE: CASE EVENT DATE: 201909
